FAERS Safety Report 24057377 (Version 1)
Quarter: 2024Q3

REPORT INFORMATION
  Report Type: Spontaneous
  Country: ZA (occurrence: ZA)
  Receive Date: 20240706
  Receipt Date: 20240706
  Transmission Date: 20241016
  Serious: Yes (Death)
  Sender: MACLEODS
  Company Number: ZA-MACLEODS PHARMA-MAC2024047954

PATIENT

DRUGS (20)
  1. VALSARTAN [Suspect]
     Active Substance: VALSARTAN
     Indication: Hypertension
     Route: 048
  2. ACETAMINOPHEN\CODEINE\IBUPROFEN [Suspect]
     Active Substance: ACETAMINOPHEN\CODEINE\IBUPROFEN
     Indication: Product used for unknown indication
     Route: 048
  3. HERBALS [Suspect]
     Active Substance: HERBALS
     Indication: Product used for unknown indication
     Dosage: 7 MG TAKE 10MLS THREE TIMES A DAY
     Route: 048
  4. LEVALBUTEROL HYDROCHLORIDE [Suspect]
     Active Substance: LEVALBUTEROL HYDROCHLORIDE
     Indication: Asthma
     Dosage: NEBULISE WITH ONE NEBULE
  5. AMOXICILLIN\FLUCLOXACILLIN [Suspect]
     Active Substance: AMOXICILLIN\FLUCLOXACILLIN
     Indication: Product used for unknown indication
     Dosage: 500 MG CAPSULE, AFTER MEAL
     Route: 048
  6. RISPERIDONE [Suspect]
     Active Substance: RISPERIDONE
     Indication: Schizophrenia
     Dosage: AT NIGHT
     Route: 048
  7. AMIODARONE [Suspect]
     Active Substance: AMIODARONE
     Indication: Arrhythmia
     Route: 048
  8. LEVOTHYROXINE SODIUM [Suspect]
     Active Substance: LEVOTHYROXINE SODIUM
     Indication: Hypothyroidism
     Dosage: MORNINGS ONE HOUR BEFORE A MEAL
     Route: 048
  9. BISOPROLOL FUMARATE [Suspect]
     Active Substance: BISOPROLOL FUMARATE
     Indication: Hypertension
     Route: 048
  10. ECOTRIN [Suspect]
     Active Substance: ASPIRIN
     Indication: Thrombosis prophylaxis
     Route: 048
  11. ZOPICLONE [Suspect]
     Active Substance: ZOPICLONE
     Indication: Insomnia
     Route: 048
  12. QUETIAPINE [Suspect]
     Active Substance: QUETIAPINE
     Indication: Schizophrenia
     Dosage: AT NIGHT
     Route: 048
  13. VALPROATE SODIUM [Suspect]
     Active Substance: VALPROATE SODIUM
     Indication: Epilepsy
     Dosage: AT NIGHT
     Route: 048
  14. AMOXICILLIN\CLAVULANIC ACID [Suspect]
     Active Substance: AMOXICILLIN\CLAVULANIC ACID
     Indication: Product used for unknown indication
     Dosage: ONE DISSOLVED IN WATER
     Route: 048
  15. CITRIC ACID MONOHYDRATE\SODIUM BICARBONATE\SODIUM CITRATE\TARTARIC ACI [Suspect]
     Active Substance: CITRIC ACID MONOHYDRATE\SODIUM BICARBONATE\SODIUM CITRATE\TARTARIC ACID
     Indication: Product used for unknown indication
     Dosage: ONE SACHET DISSOLVED IN WATER THREE TIMES A DA
     Route: 048
  16. PROBIOTICS NOS [Suspect]
     Active Substance: PROBIOTICS NOS
     Indication: Product used for unknown indication
     Route: 048
  17. ACETAMINOPHEN\CHLORPHENIRAMINE\CODEINE\PSEUDOEPHEDRINE [Suspect]
     Active Substance: ACETAMINOPHEN\CHLORPHENIRAMINE\CODEINE\PSEUDOEPHEDRINE
     Indication: Product used for unknown indication
     Dosage: TAKE ONE OR TWO TABLETS EVERY FOUR TO SIX HOURS
     Route: 048
  18. LOPERAMIDE [Suspect]
     Active Substance: LOPERAMIDE
     Indication: Product used for unknown indication
     Dosage: AS PER PACKAGE INSERT
     Route: 048
  19. CEFATRIZINE [Suspect]
     Active Substance: CEFATRIZINE
  20. MIDECAMYCIN ACETATE [Suspect]
     Active Substance: MIDECAMYCIN ACETATE

REACTIONS (1)
  - Death [Fatal]
